FAERS Safety Report 21548404 (Version 5)
Quarter: 2025Q3

REPORT INFORMATION
  Report Type: Report from Study
  Country: CA (occurrence: CA)
  Receive Date: 20221103
  Receipt Date: 20250923
  Transmission Date: 20251021
  Serious: Yes (Other)
  Sender: TAKEDA
  Company Number: CA-TAKEDA-2022TUS079386

PATIENT
  Sex: Female
  Weight: 99.32 kg

DRUGS (17)
  1. VEDOLIZUMAB [Suspect]
     Active Substance: VEDOLIZUMAB
     Indication: Crohn^s disease
  2. VEDOLIZUMAB [Suspect]
     Active Substance: VEDOLIZUMAB
     Dosage: 300 MILLIGRAM, Q4WEEKS
     Dates: start: 20190305
  3. VEDOLIZUMAB [Suspect]
     Active Substance: VEDOLIZUMAB
     Dosage: 300 MILLIGRAM, Q4WEEKS
  4. VEDOLIZUMAB [Suspect]
     Active Substance: VEDOLIZUMAB
     Dosage: 300 MILLIGRAM, Q4WEEKS
  5. VEDOLIZUMAB [Suspect]
     Active Substance: VEDOLIZUMAB
     Dosage: 300 MILLIGRAM, Q4WEEKS
  6. CIPRALEX [Concomitant]
     Active Substance: ESCITALOPRAM OXALATE
  7. ABILIFY [Concomitant]
     Active Substance: ARIPIPRAZOLE
  8. ADVAIR HFA [Concomitant]
     Active Substance: FLUTICASONE PROPIONATE\SALMETEROL XINAFOATE
  9. VENTOLIN [Concomitant]
     Active Substance: ALBUTEROL SULFATE
  10. PURINETHOL [Concomitant]
     Active Substance: MERCAPTOPURINE
     Dosage: 50 MILLIGRAM, QD
  11. CHOLESTYRAMINE [Concomitant]
     Active Substance: CHOLESTYRAMINE
     Indication: Diarrhoea
  12. HYDROMORPHONE [Concomitant]
     Active Substance: HYDROMORPHONE
  13. DEXTROAMPHETAMINE [Concomitant]
     Active Substance: DEXTROAMPHETAMINE
  14. LISDEXAMFETAMINE [Concomitant]
     Active Substance: LISDEXAMFETAMINE
  15. ESCITALOPRAM [Concomitant]
     Active Substance: ESCITALOPRAM OXALATE
     Indication: Depression
  16. ARIPIPRAZOLE [Concomitant]
     Active Substance: ARIPIPRAZOLE
     Indication: Depression
  17. BETADERM [Concomitant]
     Active Substance: BETAMETHASONE VALERATE

REACTIONS (16)
  - Haematochezia [Unknown]
  - Crohn^s disease [Unknown]
  - Intestinal stenosis [Unknown]
  - Intestinal fistula [Unknown]
  - Umbilical hernia [Recovered/Resolved]
  - Frequent bowel movements [Not Recovered/Not Resolved]
  - Anal incontinence [Unknown]
  - Defaecation urgency [Unknown]
  - Proctalgia [Unknown]
  - Diarrhoea [Unknown]
  - Depression [Unknown]
  - Fistula [Unknown]
  - Poor quality sleep [Unknown]
  - Perineal pain [Unknown]
  - Faeces discoloured [Unknown]
  - Ear pain [Unknown]
